FAERS Safety Report 9264261 (Version 1)
Quarter: 2013Q2

REPORT INFORMATION
  Report Type: Spontaneous
  Country: BE (occurrence: BE)
  Receive Date: 20130430
  Receipt Date: 20130430
  Transmission Date: 20140414
  Serious: Yes (Other)
  Sender: FDA-Public Use
  Company Number: PHHY2013BE042119

PATIENT
  Sex: Female

DRUGS (1)
  1. SIMVASTATIN SANDOZ [Suspect]

REACTIONS (4)
  - Hepatic haemorrhage [Unknown]
  - Muscular weakness [Unknown]
  - Inflammation [Unknown]
  - Erythema [Unknown]
